FAERS Safety Report 22923007 (Version 7)
Quarter: 2025Q1

REPORT INFORMATION
  Report Type: Spontaneous
  Country: BR (occurrence: BR)
  Receive Date: 20230908
  Receipt Date: 20250303
  Transmission Date: 20250409
  Serious: Yes (Other)
  Sender: SANDOZ
  Company Number: BR-002147023-NVSC2023BR055476

PATIENT
  Sex: Female
  Weight: 106 kg

DRUGS (9)
  1. FULVESTRANT [Suspect]
     Active Substance: FULVESTRANT
     Indication: Breast cancer
     Route: 030
     Dates: start: 20230209
  2. KISQALI [Suspect]
     Active Substance: RIBOCICLIB
     Route: 065
  3. KISQALI [Suspect]
     Active Substance: RIBOCICLIB
     Dosage: 3 DF, QD, (ONCE A DAY PER 21 DAYS AND 7DAYS PAUSE AFTER)
     Route: 048
     Dates: start: 20230209
  4. KISQALI [Suspect]
     Active Substance: RIBOCICLIB
     Route: 048
  5. KISQALI [Suspect]
     Active Substance: RIBOCICLIB
     Route: 065
     Dates: start: 202302
  6. KISQALI [Suspect]
     Active Substance: RIBOCICLIB
     Indication: Breast cancer female
     Route: 065
  7. KISQALI [Suspect]
     Active Substance: RIBOCICLIB
     Route: 065
  8. LETROZOLE [Suspect]
     Active Substance: LETROZOLE
     Indication: Product used for unknown indication
     Route: 065
     Dates: start: 2016
  9. PAMIDRONATE DISODIUM [Concomitant]
     Active Substance: PAMIDRONATE DISODIUM
     Indication: Product used for unknown indication
     Route: 042
     Dates: start: 20230209

REACTIONS (40)
  - Glaucoma [Unknown]
  - Neutropenia [Recovered/Resolved]
  - Breast cancer [Unknown]
  - Malignant neoplasm progression [Unknown]
  - Metastases to lung [Unknown]
  - Metastases to liver [Unknown]
  - Syncope [Recovered/Resolved]
  - Decreased immune responsiveness [Recovered/Resolved]
  - Aphthous ulcer [Not Recovered/Not Resolved]
  - Feeding disorder [Not Recovered/Not Resolved]
  - Genital erythema [Not Recovered/Not Resolved]
  - Urinary hesitation [Not Recovered/Not Resolved]
  - Skin hypertrophy [Recovered/Resolved with Sequelae]
  - Pigmentation disorder [Recovered/Resolved with Sequelae]
  - Lymphoedema [Not Recovered/Not Resolved]
  - Memory impairment [Unknown]
  - Decreased immune responsiveness [Unknown]
  - Disturbance in attention [Unknown]
  - Pain [Unknown]
  - Scar [Recovering/Resolving]
  - Skin discolouration [Recovering/Resolving]
  - Swelling [Unknown]
  - Infection [Unknown]
  - Skin discomfort [Recovering/Resolving]
  - Confusional state [Unknown]
  - Platelet count decreased [Unknown]
  - Visual impairment [Unknown]
  - Skin infection [Recovering/Resolving]
  - Injury [Unknown]
  - Pulmonary mass [Unknown]
  - Malaise [Recovered/Resolved]
  - Insomnia [Recovered/Resolved]
  - Insomnia [Unknown]
  - Asthenia [Recovering/Resolving]
  - Pruritus [Recovering/Resolving]
  - Fatigue [Unknown]
  - Dizziness [Recovering/Resolving]
  - Malaise [Not Recovered/Not Resolved]
  - Dry skin [Recovering/Resolving]
  - Drug ineffective [Unknown]

NARRATIVE: CASE EVENT DATE: 20230101
